FAERS Safety Report 14828637 (Version 1)
Quarter: 2018Q2

REPORT INFORMATION
  Report Type: Spontaneous
  Country: JP (occurrence: JP)
  Receive Date: 20180430
  Receipt Date: 20180430
  Transmission Date: 20180711
  Serious: Yes (Other)
  Sender: FDA-Public Use
  Company Number: JP-SA-2018SA119028

PATIENT

DRUGS (4)
  1. ELPLAT [Suspect]
     Active Substance: OXALIPLATIN
     Dosage: I.V. INFUSION SOLUTION / INJECTION
     Route: 041
     Dates: start: 201308, end: 201308
  2. LEVOFOLINATE [Suspect]
     Active Substance: LEVOLEUCOVORIN CALCIUM
     Dosage: I.V. INFUSION [YAKULT] / INJECTION
     Route: 041
     Dates: start: 201308, end: 201308
  3. LEVOFOLINATE [Suspect]
     Active Substance: LEVOLEUCOVORIN CALCIUM
     Dosage: I.V. INFUSION [YAKULT] / INJECTION
     Route: 041
     Dates: start: 201502, end: 201502
  4. ELPLAT [Suspect]
     Active Substance: OXALIPLATIN
     Dosage: I.V. INFUSION SOLUTION / INJECTION
     Route: 041
     Dates: start: 201405, end: 201405

REACTIONS (2)
  - Diabetic nephropathy [Unknown]
  - Neuropathy peripheral [Unknown]
